FAERS Safety Report 17191944 (Version 3)
Quarter: 2020Q1

REPORT INFORMATION
  Report Type: Spontaneous
  Country: US (occurrence: US)
  Receive Date: 20191223
  Receipt Date: 20200318
  Transmission Date: 20200409
  Serious: No
  Sender: FDA-Public Use
  Company Number: US-NANJING KING-FRIEND BIOCHEMICAL PHARMACEUTICAL CO., LTD-2019NKF00032

PATIENT
  Age: 62 Year
  Sex: Male
  Weight: 105 kg

DRUGS (18)
  1. SPIRONOLACTONE. [Concomitant]
     Active Substance: SPIRONOLACTONE
  2. TAMSULOSIN [Concomitant]
     Active Substance: TAMSULOSIN
  3. AMIODARONE [Concomitant]
     Active Substance: AMIODARONE
  4. LEXAPRO [Concomitant]
     Active Substance: ESCITALOPRAM OXALATE
  5. ATORVASTATIN [Concomitant]
     Active Substance: ATORVASTATIN
  6. HEPARIN SODIUM. [Suspect]
     Active Substance: HEPARIN SODIUM
     Indication: CORONARY ARTERY BYPASS
  7. HEPARIN [Suspect]
     Active Substance: HEPARIN SODIUM
     Dosage: 3000 U, ONCE AT 12:45
     Route: 042
     Dates: start: 20191120, end: 20191120
  8. FUROSEMIDE. [Concomitant]
     Active Substance: FUROSEMIDE
  9. METHYLPREDNISOLONE. [Concomitant]
     Active Substance: METHYLPREDNISOLONE
  10. SENNA [Concomitant]
     Active Substance: SENNA LEAF\SENNOSIDES\SENNOSIDES A AND B
  11. THIAMINE. [Concomitant]
     Active Substance: THIAMINE
  12. HEPARIN [Suspect]
     Active Substance: HEPARIN SODIUM
     Dosage: 2000 U, ONCE AT 11:50
     Route: 042
     Dates: start: 20191120, end: 20191120
  13. FOLIC ACID. [Concomitant]
     Active Substance: FOLIC ACID
  14. NEPHROCAPS [Concomitant]
     Active Substance: ASCORBIC ACID\BIOTIN\CYANOCOBALAMIN\FOLIC ACID\NIACIN\PANTOTHENIC ACID\PYRIDOXINE\RIBOFLAVIN\THIAMINE
  15. HEPARIN SODIUM. [Suspect]
     Active Substance: HEPARIN SODIUM
     Indication: PERCUTANEOUS CORONARY INTERVENTION
     Dosage: 8000 U AT 11:40
     Route: 042
     Dates: start: 20191120, end: 20191120
  16. HEPARIN [Suspect]
     Active Substance: HEPARIN SODIUM
     Dosage: 5000 U, ONCE AT 12:10
     Route: 042
     Dates: start: 20191120, end: 20191120
  17. LOSARTAN. [Concomitant]
     Active Substance: LOSARTAN
  18. PANTOPRAZOLE [Concomitant]
     Active Substance: PANTOPRAZOLE

REACTIONS (1)
  - Therapeutic product effect incomplete [Recovered/Resolved]

NARRATIVE: CASE EVENT DATE: 20191120
